FAERS Safety Report 7032179-X (Version None)
Quarter: 2010Q4

REPORT INFORMATION
  Report Type: 
  Country: None (occurrence: None)
  Receive Date: 20101007
  Receipt Date: 20100928
  Transmission Date: 20110411
  Serious: Yes (Hospitalization)
  Sender: FDA-Public Use
  Company Number: CA-NOVOPROD-315655

PATIENT
  Age: 71 Year
  Sex: Female

DRUGS (10)
  1. VICTOZA [Suspect]
     Indication: PRODUCT USED FOR UNKNOWN INDICATION
  2. AVAPRO [Concomitant]
     Dosage: ORAL
     Route: 048
  3. CITALOPRAM HYDROBROMIDE [Concomitant]
     Dosage: ORAL
     Route: 048
  4. LEVEMIR [Concomitant]
     Dosage: SUBCUTANEOUS
     Route: 058
  5. TIAZAC                             /00489702/ [Concomitant]
     Dosage: ORAL
     Route: 048
  6. FUROSEMIDE [Concomitant]
     Dosage: ORAL
     Route: 048
  7. METFORMIN [Concomitant]
     Dosage: ORAL
     Route: 048
  8. METOPROLOL TARTRATE [Concomitant]
     Dosage: ORAL
     Route: 048
  9. RASILEZ                            /01763601/ [Concomitant]
     Dosage: ORAL
     Route: 048
  10. IRON [Concomitant]
     Dosage: ORAL
     Route: 048

REACTIONS (1)
  - CARDIAC ARREST [None]
